FAERS Safety Report 5267138-0 (Version None)
Quarter: 2007Q1

REPORT INFORMATION
  Report Type: 
  Country: None (occurrence: None)
  Receive Date: 20070316
  Receipt Date: 20070308
  Transmission Date: 20070707
  Serious: Yes (Disabling)
  Sender: FDA-Public Use
  Company Number: PHHO2007FR01860

PATIENT
  Age: 58 Year
  Sex: Female
  Weight: 79 kg

DRUGS (9)
  1. IMATINIB MESYLATE [Suspect]
     Indication: ACUTE LYMPHOCYTIC LEUKAEMIA
     Dosage: 800 MG, QD
     Route: 048
     Dates: start: 20070115
  2. METHOTREXATE [Concomitant]
     Indication: ACUTE LYMPHOCYTIC LEUKAEMIA
     Dosage: 1900MG 24H
     Route: 042
     Dates: start: 20070115
  3. ARACYTINE [Suspect]
     Indication: ACUTE LYMPHOCYTIC LEUKAEMIA
     Dosage: 5650 MG, BID
     Route: 042
     Dates: start: 20070115, end: 20070118
  4. PRIMPERAN INJ [Concomitant]
  5. LARGACTIL [Concomitant]
  6. HEPARIN [Concomitant]
  7. FORTUM [Concomitant]
  8. AMIKLIN [Concomitant]
  9. PAROXETINE HCL [Concomitant]

REACTIONS (4)
  - BALANCE DISORDER [None]
  - CEREBELLAR SYNDROME [None]
  - DYSARTHRIA [None]
  - MYOCLONUS [None]
